FAERS Safety Report 25456456 (Version 1)
Quarter: 2025Q2

REPORT INFORMATION
  Report Type: Report from Study
  Country: US (occurrence: US)
  Receive Date: 20250619
  Receipt Date: 20250619
  Transmission Date: 20250717
  Serious: Yes (Hospitalization)
  Sender: OTSUKA
  Company Number: US-MMM-Otsuka-WLPAYBVD

PATIENT
  Age: 58 Year
  Sex: Female

DRUGS (1)
  1. TOLVAPTAN [Suspect]
     Active Substance: TOLVAPTAN
     Indication: Congenital cystic kidney disease
     Route: 065
     Dates: start: 20241202

REACTIONS (7)
  - Illness [Unknown]
  - Oliguria [Unknown]
  - Dysuria [Unknown]
  - Sleep disorder [Unknown]
  - Vomiting [Not Recovered/Not Resolved]
  - Micturition urgency [Unknown]
  - Fatigue [Not Recovered/Not Resolved]

NARRATIVE: CASE EVENT DATE: 20250301
